FAERS Safety Report 8532542-1 (Version None)
Quarter: 2012Q3

REPORT INFORMATION
  Report Type: 
  Country: None (occurrence: None)
  Receive Date: 20120724
  Receipt Date: 20120717
  Transmission Date: 20120928
  Serious: No
  Sender: FDA-Public Use
  Company Number: US-PFIZER INC-2012120897

PATIENT
  Sex: Female
  Weight: 59.41 kg

DRUGS (13)
  1. TESSALON [Concomitant]
     Dosage: UNK
  2. LYRICA [Suspect]
     Dosage: 150 MG, 2X/DAY
     Route: 048
  3. METFORMIN [Concomitant]
     Dosage: UNK
  4. GABAPENTIN [Suspect]
     Indication: FIBROMYALGIA
     Dosage: UNK
  5. LYRICA [Suspect]
     Indication: FIBROMYALGIA
     Dosage: 50 MG, 2X/DAY
  6. ULTRAM [Suspect]
     Indication: PAIN
     Dosage: UNK
     Dates: start: 20120501
  7. DOXEPIN HCL [Suspect]
     Indication: SLEEP DISORDER
     Dosage: 50 MG, DAILY AT NIGHT
  8. PREMARIN [Concomitant]
     Dosage: UNK, DAILY
  9. CELEXA [Concomitant]
     Dosage: UNK
  10. ESTRADIOL [Concomitant]
     Dosage: UNK
  11. AMARYL [Concomitant]
  12. NEXIUM [Concomitant]
     Indication: GASTROOESOPHAGEAL REFLUX DISEASE
     Dosage: 50 MG, DAILY
  13. FLEXERIL [Concomitant]
     Dosage: UNK, 2X/DAY

REACTIONS (3)
  - DRUG INEFFECTIVE [None]
  - FIBROMYALGIA [None]
  - PAIN [None]
